FAERS Safety Report 5265125-X (Version None)
Quarter: 2007Q1

REPORT INFORMATION
  Report Type: 
  Country: None (occurrence: None)
  Receive Date: 20061121
  Receipt Date: 20061005
  Transmission Date: 20070707
  Serious: No
  Sender: FDA-Public Use
  Company Number: TPA2006A01754

PATIENT
  Age: 54 Year
  Sex: Female

DRUGS (1)
  1. ROZEREM [Suspect]
     Dosage: ONE TABLET AT BEDTIME, PER ORAL
     Route: 048

REACTIONS (1)
  - DRUG INEFFECTIVE [None]
